FAERS Safety Report 17316768 (Version 1)
Quarter: 2020Q1

REPORT INFORMATION
  Report Type: Spontaneous
  Country: US (occurrence: US)
  Receive Date: 20200124
  Receipt Date: 20200124
  Transmission Date: 20200409
  Serious: No
  Sender: FDA-Public Use
  Company Number: US-PERRIGO-19US000760

PATIENT
  Age: 1 Year
  Sex: Male
  Weight: 8.62 kg

DRUGS (2)
  1. IBUPROFEN. [Suspect]
     Active Substance: IBUPROFEN
     Indication: PRODUCT USED FOR UNKNOWN INDICATION
     Dosage: UNKNOWN, SINGLE
     Route: 048
     Dates: start: 20190116, end: 20190116
  2. IBUPROFEN. [Suspect]
     Active Substance: IBUPROFEN
     Dosage: APPROXIMATELY 1200 MG, SINGLE
     Route: 048
     Dates: start: 20190117, end: 20190117

REACTIONS (4)
  - Balance disorder [Unknown]
  - Dizziness [Unknown]
  - Accidental exposure to product by child [Recovered/Resolved]
  - Product administered to patient of inappropriate age [Recovered/Resolved]

NARRATIVE: CASE EVENT DATE: 20190116
